FAERS Safety Report 10039780 (Version 3)
Quarter: 2014Q2

REPORT INFORMATION
  Report Type: Spontaneous
  Country: US (occurrence: US)
  Receive Date: 20140326
  Receipt Date: 20140407
  Transmission Date: 20141212
  Serious: Yes (Other)
  Sender: FDA-Public Use
  Company Number: US-JNJFOC-20140311759

PATIENT
  Sex: Male
  Weight: 131.54 kg

DRUGS (6)
  1. XARELTO [Suspect]
     Indication: CEREBROVASCULAR ACCIDENT PROPHYLAXIS
     Route: 048
     Dates: start: 201308
  2. XARELTO [Suspect]
     Indication: ATRIAL FIBRILLATION
     Route: 048
     Dates: start: 201308
  3. ASPIRIN [Suspect]
     Indication: CARDIAC DISORDER
     Route: 048
  4. METOPROLOL [Concomitant]
     Indication: CARDIAC DISORDER
     Route: 048
  5. VERAPAMIL [Concomitant]
     Indication: CARDIAC DISORDER
     Route: 048
  6. CRESTOR [Concomitant]
     Indication: CARDIAC DISORDER
     Route: 048

REACTIONS (3)
  - Contusion [Unknown]
  - Epistaxis [Unknown]
  - Haemoglobin decreased [Unknown]
